FAERS Safety Report 4384305-9 (Version None)
Quarter: 2004Q2

REPORT INFORMATION
  Report Type: 
  Country: None (occurrence: None)
  Receive Date: 20040624
  Receipt Date: 20040609
  Transmission Date: 20050107
  Serious: Yes (Life-Threatening)
  Sender: FDA-Public Use
  Company Number: AU-ROCHE-371761

PATIENT
  Age: 42 Year
  Sex: Male
  Weight: 113 kg

DRUGS (2)
  1. XENICAL [Suspect]
     Indication: DRUG USE FOR UNKNOWN INDICATION
     Route: 048
     Dates: start: 20040310
  2. FLIXOTIDE [Concomitant]
     Indication: ASTHMA
     Dosage: THERAPY: LONG TERM.

REACTIONS (5)
  - ABDOMINAL PAIN [None]
  - COLITIS [None]
  - COLITIS ISCHAEMIC [None]
  - LOOSE STOOLS [None]
  - RECTAL HAEMORRHAGE [None]
